FAERS Safety Report 11629058 (Version 1)
Quarter: 2015Q4

REPORT INFORMATION
  Report Type: Spontaneous
  Country: US (occurrence: US)
  Receive Date: 20151014
  Receipt Date: 20151014
  Transmission Date: 20160304
  Serious: No
  Sender: FDA-Public Use
  Company Number: US-UNIQUE PHARMACEUTICAL LABORATORIES-2015RIS00064

PATIENT
  Age: 60 Year
  Sex: Female
  Weight: 55.78 kg

DRUGS (5)
  1. UNSPECIFIED ANTI-ACID [Concomitant]
  2. UNSPECIFIED CRANBERRY PILL [Concomitant]
  3. CETIRIZINE HYDROCHLORIDE. [Suspect]
     Active Substance: CETIRIZINE HYDROCHLORIDE
     Dosage: 20 MG, ONCE
     Route: 048
     Dates: start: 20150429, end: 20150429
  4. TYLENOL [Concomitant]
     Active Substance: ACETAMINOPHEN
  5. CETIRIZINE HYDROCHLORIDE. [Suspect]
     Active Substance: CETIRIZINE HYDROCHLORIDE
     Indication: MULTIPLE ALLERGIES
     Dosage: 10 MG, 1X/DAY
     Route: 048
     Dates: start: 20150423, end: 20150428

REACTIONS (2)
  - Extra dose administered [Recovered/Resolved]
  - Somnolence [Recovered/Resolved]

NARRATIVE: CASE EVENT DATE: 201504
